FAERS Safety Report 26202914 (Version 1)
Quarter: 2025Q4

REPORT INFORMATION
  Report Type: Report from Study
  Country: JP (occurrence: JP)
  Receive Date: 20251226
  Receipt Date: 20251226
  Transmission Date: 20260117
  Serious: Yes (Other)
  Sender: NOVARTIS
  Company Number: JP-002147023-NVSJ2025JP011753

PATIENT
  Age: 55 Year
  Sex: Female
  Weight: 56.4 kg

DRUGS (1)
  1. AFINITOR [Suspect]
     Active Substance: EVEROLIMUS
     Indication: Malignant neoplasm of renal pelvis
     Dosage: 10 MG
     Route: 048
     Dates: start: 20250306, end: 20250611

REACTIONS (3)
  - Thrombocytopenia [Recovered/Resolved]
  - Epistaxis [Recovered/Resolved]
  - Hypercholesterolaemia [Recovered/Resolved]

NARRATIVE: CASE EVENT DATE: 20250328
